FAERS Safety Report 13195716 (Version 1)
Quarter: 2017Q1

REPORT INFORMATION
  Report Type: Spontaneous
  Country: GB (occurrence: GB)
  Receive Date: 20170208
  Receipt Date: 20170208
  Transmission Date: 20170428
  Serious: Yes (Other)
  Sender: FDA-Public Use
  Company Number: GB-ASTRAZENECA-2017SE12190

PATIENT

DRUGS (3)
  1. BRILIQUE [Suspect]
     Active Substance: TICAGRELOR
     Route: 048
  2. B-BLOCKER [Interacting]
     Active Substance: UNSPECIFIED INGREDIENT
     Route: 065
  3. IVABRADINE [Interacting]
     Active Substance: IVABRADINE
     Route: 065

REACTIONS (3)
  - Drug interaction [Unknown]
  - Seizure [Unknown]
  - Atrial fibrillation [Unknown]
